FAERS Safety Report 6064201-1 (Version None)
Quarter: 2009Q1

REPORT INFORMATION
  Report Type: 
  Country: None (occurrence: None)
  Receive Date: 20090204
  Receipt Date: 20090130
  Transmission Date: 20090719
  Serious: Yes (Death)
  Sender: FDA-Public Use
  Company Number: US-BRISTOL-MYERS SQUIBB COMPANY-14489397

PATIENT
  Age: 7 Decade
  Sex: Female

DRUGS (1)
  1. ABILIFY [Suspect]
     Indication: DEMENTIA
     Dosage: STARTED WITH ABILIFY 2MG AND DOSE INCREASED

REACTIONS (1)
  - COMA [None]
